FAERS Safety Report 8489369-9 (Version None)
Quarter: 2012Q3

REPORT INFORMATION
  Report Type: 
  Country: None (occurrence: None)
  Receive Date: 20120705
  Receipt Date: 20120625
  Transmission Date: 20120928
  Serious: Yes (Other)
  Sender: FDA-Public Use
  Company Number: US-ASTRAZENECA-2012SE42694

PATIENT
  Age: 68 Year
  Sex: Male
  Weight: 105.7 kg

DRUGS (10)
  1. SYMBICORT [Suspect]
     Indication: PULMONARY FUNCTION TEST
     Dosage: 80/4.5, 2 PUFFS, TWO TIMES A DAY
     Route: 055
     Dates: start: 20120622
  2. LISINOPRIL [Concomitant]
  3. FLUTICASONE PROPIONATE [Concomitant]
  4. LOVAZA [Concomitant]
  5. COREG [Concomitant]
  6. SYMBICORT [Suspect]
     Indication: TOTAL LUNG CAPACITY DECREASED
     Dosage: 80/4.5, 2 PUFFS, TWO TIMES A DAY
     Route: 055
     Dates: start: 20120622
  7. ALLOPURINOL [Concomitant]
  8. LASIX [Concomitant]
  9. SINGULAIR [Concomitant]
  10. COZAAR [Concomitant]

REACTIONS (3)
  - INTENTIONAL DRUG MISUSE [None]
  - CARDIAC FAILURE [None]
  - STOMATITIS [None]
